FAERS Safety Report 19079411 (Version 2)
Quarter: 2021Q2

REPORT INFORMATION
  Report Type: Spontaneous
  Country: NO (occurrence: NO)
  Receive Date: 20210331
  Receipt Date: 20210510
  Transmission Date: 20210717
  Serious: Yes (Hospitalization, Other)
  Sender: FDA-Public Use
  Company Number: NO-FERRINGPH-2021FE02068

PATIENT
  Age: 76 Year
  Sex: Female

DRUGS (15)
  1. ATROVENT [Concomitant]
     Active Substance: IPRATROPIUM BROMIDE
     Dosage: 40 UG, 2 TIMES DAILY (12 H)
     Route: 065
  2. BETMIGA [Concomitant]
     Active Substance: MIRABEGRON
     Dosage: 50 MG, 1 TIME DAILY
     Route: 065
  3. SINGULAIR [Concomitant]
     Active Substance: MONTELUKAST SODIUM
     Dosage: 10 MG, 1 TIME DAILY
     Route: 048
  4. VAGIFEM [Concomitant]
     Active Substance: ESTRADIOL
     Dosage: 10 UG TWICE A WEEK
     Route: 065
  5. STILNOCT [Concomitant]
     Active Substance: ZOLPIDEM TARTRATE
     Dosage: 10 MG, 1 TIME DAILY (EVENING)
     Route: 048
  6. PICOPREP [Suspect]
     Active Substance: ANHYDROUS CITRIC ACID\MAGNESIUM OXIDE\SODIUM PICOSULFATE
     Indication: BOWEL PREPARATION
     Dosage: FOLLOWED RECOMMENDED DOSAGE REGIME
     Route: 048
     Dates: start: 20210221, end: 20210222
  7. CALCIGRAN FORTE [Concomitant]
     Active Substance: CALCIUM CARBONATE\CHOLECALCIFEROL
     Route: 065
  8. AIROMIR [SALBUTAMOL] [Concomitant]
     Active Substance: ALBUTEROL SULFATE
     Dosage: 2 DOSES A 0.1 MG AS NEEDED
  9. ALBYL?E [Concomitant]
     Active Substance: ASPIRIN\MAGNESIUM OXIDE
     Dosage: 75 MG, 1 TIME DAILY
     Route: 048
  10. INUXAIR [Concomitant]
     Dosage: 2 DF, 2 TIMES DAILY (12 H)
     Route: 065
  11. PARACET [PARACETAMOL] [Concomitant]
     Dosage: 1?2 TABLETS A 500 MG UP TO 3 TIMES DAILY AS NEEDED
  12. HIPREX [METHENAMINE HIPPURATE] [Concomitant]
     Dosage: 1 G, 2 TIMES DAILY (12 H)
     Route: 065
  13. COAPROVEL [Concomitant]
     Active Substance: HYDROCHLOROTHIAZIDE\IRBESARTAN
     Dosage: 1 DF, 1 TIME DAILY
     Route: 065
  14. LANSOPRAZOLE. [Concomitant]
     Active Substance: LANSOPRAZOLE
     Dosage: 30 MG, 2 TIMES DAILY (12 H)
  15. SOBRIL [Concomitant]
     Active Substance: OXAZEPAM
     Dosage: AS NEEDED

REACTIONS (4)
  - Chest pain [Recovering/Resolving]
  - Acute myocardial infarction [Recovering/Resolving]
  - Vomiting [Recovered/Resolved]
  - Nausea [Recovered/Resolved]

NARRATIVE: CASE EVENT DATE: 20210221
